FAERS Safety Report 6774124-8 (Version None)
Quarter: 2010Q2

REPORT INFORMATION
  Report Type: 
  Country: None (occurrence: None)
  Receive Date: 20100617
  Receipt Date: 20100604
  Transmission Date: 20101027
  Serious: Yes (Other)
  Sender: FDA-Public Use
  Company Number: AU-JNJFOC-20100604553

PATIENT

DRUGS (1)
  1. MEBENDAZOLE [Suspect]
     Indication: ECHINOCOCCIASIS

REACTIONS (2)
  - ALOPECIA [None]
  - GRANULOCYTOPENIA [None]
